FAERS Safety Report 5475837-0 (Version None)
Quarter: 2007Q4

REPORT INFORMATION
  Report Type: 
  Country: None (occurrence: None)
  Receive Date: 20071003
  Receipt Date: 20070927
  Transmission Date: 20080405
  Serious: Yes (Other)
  Sender: FDA-Public Use
  Company Number: B0489509A

PATIENT
  Age: 38 Year
  Sex: Female

DRUGS (1)
  1. SERETIDE [Suspect]
     Indication: DRUG USE FOR UNKNOWN INDICATION
     Dosage: 125MCG UNKNOWN
     Route: 055
     Dates: start: 20070522, end: 20070709

REACTIONS (2)
  - FLUID RETENTION [None]
  - GENERALISED OEDEMA [None]
